FAERS Safety Report 4806956-7 (Version None)
Quarter: 2005Q4

REPORT INFORMATION
  Report Type: 
  Country: None (occurrence: None)
  Receive Date: 20051024
  Receipt Date: 20051017
  Transmission Date: 20060501
  Serious: Yes (Death)
  Sender: FDA-Public Use
  Company Number: US-BRISTOL-MYERS SQUIBB COMPANY-13147533

PATIENT
  Age: 69 Year
  Sex: Female
  Weight: 68 kg

DRUGS (4)
  1. GLUCOPHAGE [Suspect]
     Indication: DIABETES MELLITUS
  2. HUMULIN 70/30 [Concomitant]
     Dosage: 35 UNITS IN THE AM; 35 UNITS IN THE PM
  3. LIPITOR [Concomitant]
  4. ARIMIDEX [Concomitant]

REACTIONS (1)
  - NEOPLASM MALIGNANT [None]
